FAERS Safety Report 8081088-6 (Version None)
Quarter: 2012Q1

REPORT INFORMATION
  Report Type: 
  Country: None (occurrence: None)
  Receive Date: 20120130
  Receipt Date: 20120123
  Transmission Date: 20120608
  Serious: Yes (Hospitalization)
  Sender: FDA-Public Use
  Company Number: JP-ABBOTT-12P-087-0895972-00

PATIENT

DRUGS (1)
  1. LIPACREON [Suspect]
     Indication: PANCREATITIS CHRONIC
     Route: 048

REACTIONS (2)
  - AMYLASE INCREASED [None]
  - PANCREATITIS [None]
